FAERS Safety Report 5974904-2 (Version None)
Quarter: 2008Q4

REPORT INFORMATION
  Report Type: 
  Country: None (occurrence: None)
  Receive Date: 20081202
  Receipt Date: 20081127
  Transmission Date: 20090506
  Serious: Yes (Hospitalization)
  Sender: FDA-Public Use
  Company Number: JP-PFIZER INC-2008100160

PATIENT
  Age: 94 Year
  Sex: Female

DRUGS (9)
  1. NORVASC [Suspect]
     Indication: HYPERTENSION
     Dosage: DAILY DOSE:2.5MG
     Route: 048
     Dates: start: 20080201
  2. ATARAX [Suspect]
     Dosage: DAILY DOSE:50MG
     Route: 048
     Dates: start: 20080201
  3. SUNRYTHM [Concomitant]
     Dates: start: 20080101
  4. ASPIRIN [Concomitant]
     Dates: start: 20080101
  5. ROHYPNOL [Concomitant]
     Dates: start: 20080101
  6. MAGNESIUM OXIDE [Concomitant]
     Dates: start: 20080101
  7. BROTIZOLAM [Concomitant]
     Dates: start: 20080101
  8. TIAPRIDE HYDROCHLORIDE [Concomitant]
     Dates: start: 20080101
  9. PREDNISOLONE [Concomitant]
     Dates: start: 20080101

REACTIONS (2)
  - CHROMATURIA [None]
  - UNEVALUABLE EVENT [None]
